FAERS Safety Report 8221716-5 (Version None)
Quarter: 2012Q1

REPORT INFORMATION
  Report Type: 
  Country: None (occurrence: None)
  Receive Date: 20120320
  Receipt Date: 20120315
  Transmission Date: 20120608
  Serious: Yes (Other)
  Sender: FDA-Public Use
  Company Number: US-PFIZER INC-2012067281

PATIENT
  Age: 39 Year
  Sex: Female

DRUGS (1)
  1. CYTOTEC [Suspect]
     Dosage: UNK
     Route: 050

REACTIONS (1)
  - ABORTION SPONTANEOUS [None]
